FAERS Safety Report 7423210-8 (Version None)
Quarter: 2011Q2

REPORT INFORMATION
  Report Type: 
  Country: None (occurrence: None)
  Receive Date: 20110419
  Receipt Date: 20101117
  Transmission Date: 20111010
  Serious: Yes (Other)
  Sender: FDA-Public Use
  Company Number: JP-BAYER-201015085BYL

PATIENT
  Age: 42 Year
  Sex: Female

DRUGS (1)
  1. TRIQUILAR [Suspect]
     Indication: MENSTRUATION IRREGULAR
     Route: 048
     Dates: end: 20101008

REACTIONS (3)
  - PAPILLOEDEMA [None]
  - VITH NERVE PARALYSIS [None]
  - INTRACRANIAL PRESSURE INCREASED [None]
